FAERS Safety Report 8030505-6 (Version None)
Quarter: 2012Q1

REPORT INFORMATION
  Report Type: 
  Country: None (occurrence: None)
  Receive Date: 20120105
  Receipt Date: 20111220
  Transmission Date: 20120608
  Serious: Yes (Hospitalization)
  Sender: FDA-Public Use
  Company Number: 01042012

PATIENT
  Age: 72 Year
  Sex: Male

DRUGS (2)
  1. MEDICON (DEXTROMETHORPHAN HYDROBROMIDE) [Concomitant]
  2. LANSOPRAZOLE [Suspect]
     Indication: GASTROOESOPHAGEAL REFLUX DISEASE
     Dosage: 30 MG (30 MG, 1 IN 1 D) ORAL
     Route: 048
     Dates: start: 20110725, end: 20110803

REACTIONS (5)
  - INAPPROPRIATE ANTIDIURETIC HORMONE SECRETION [None]
  - HEADACHE [None]
  - NAUSEA [None]
  - VOMITING [None]
  - DIZZINESS [None]
